FAERS Safety Report 16656383 (Version 1)
Quarter: 2019Q3

REPORT INFORMATION
  Report Type: Report from Study
  Country: IT (occurrence: IT)
  Receive Date: 20190801
  Receipt Date: 20190801
  Transmission Date: 20191004
  Serious: Yes (Hospitalization)
  Sender: FDA-Public Use
  Company Number: IT-PACIRA-201400099

PATIENT
  Age: 43 Year
  Sex: Female

DRUGS (2)
  1. DEPOCYT [Suspect]
     Active Substance: CYTARABINE
     Indication: ACUTE LYMPHOCYTIC LEUKAEMIA
     Dosage: UNK, UNK, UNK
     Route: 037
  2. GLIVEC [Suspect]
     Active Substance: IMATINIB MESYLATE
     Indication: ACUTE LYMPHOCYTIC LEUKAEMIA
     Dosage: 600 MG, UNK, FREQUENCY : UNK
     Route: 048
     Dates: start: 20100413, end: 20100531

REACTIONS (5)
  - Hepatic failure [Recovered/Resolved]
  - Enterocolitis [Recovered/Resolved]
  - Vomiting [Recovered/Resolved]
  - Nausea [Recovered/Resolved]
  - Clostridium difficile infection [Recovered/Resolved]

NARRATIVE: CASE EVENT DATE: 20100420
